FAERS Safety Report 23850029 (Version 1)
Quarter: 2024Q2

REPORT INFORMATION
  Report Type: Spontaneous
  Country: US (occurrence: None)
  Receive Date: 20240512
  Receipt Date: 20240512
  Transmission Date: 20240716
  Serious: Yes (Life-Threatening, Other)
  Sender: FDA-Public Use
  Company Number: None

PATIENT
  Age: 42 Year
  Sex: 0

DRUGS (1)
  1. BENZEDREX [Suspect]
     Active Substance: PROPYLHEXEDRINE

REACTIONS (8)
  - Product availability issue [None]
  - Product use issue [None]
  - Self-medication [None]
  - Mental disorder [None]
  - Quality of life decreased [None]
  - Family stress [None]
  - Euphoric mood [None]
  - Unintentional use for unapproved indication [None]
